FAERS Safety Report 20143653 (Version 1)
Quarter: 2021Q4

REPORT INFORMATION
  Report Type: Other
  Country: CA (occurrence: CA)
  Receive Date: 20211203
  Receipt Date: 20211203
  Transmission Date: 20220303
  Serious: Yes (Life-Threatening, Hospitalization)
  Sender: FDA-Public Use
  Company Number: CA-APOTEX-2021AP046004

PATIENT
  Age: 63 Year
  Sex: Female

DRUGS (1)
  1. LITHIUM [Suspect]
     Active Substance: LITHIUM
     Indication: Affective disorder
     Dosage: 300 MILLIGRAM, QID
     Route: 048

REACTIONS (9)
  - Overdose [Recovered/Resolved]
  - Aphasia [Recovered/Resolved]
  - Disturbance in attention [Recovered/Resolved]
  - Eating disorder [Recovered/Resolved]
  - Gait disturbance [Recovered/Resolved]
  - Hypertension [Recovered/Resolved]
  - Insomnia [Recovered/Resolved]
  - Memory impairment [Recovered/Resolved]
  - Toxicity to various agents [Recovered/Resolved]
